FAERS Safety Report 16328316 (Version 2)
Quarter: 2025Q3

REPORT INFORMATION
  Report Type: Report from Study
  Country: GB (occurrence: GB)
  Receive Date: 20190518
  Receipt Date: 20250721
  Transmission Date: 20251020
  Serious: Yes (Death)
  Sender: AUROBINDO
  Company Number: GB-AUROBINDO-AUR-APL-2019-027677

PATIENT

DRUGS (2)
  1. RIBAVIRIN [Suspect]
     Active Substance: RIBAVIRIN
     Indication: Viral upper respiratory tract infection
     Route: 065
  2. HUMAN IMMUNOGLOBULIN G [Suspect]
     Active Substance: HUMAN IMMUNOGLOBULIN G
     Indication: Viral upper respiratory tract infection
     Route: 042

REACTIONS (1)
  - Drug ineffective for unapproved indication [Fatal]
